FAERS Safety Report 5332250-4 (Version None)
Quarter: 2007Q1

REPORT INFORMATION
  Report Type: 
  Country: None (occurrence: None)
  Receive Date: 20070306
  Receipt Date: 20060518
  Transmission Date: 20070707
  Serious: Yes (Hospitalization)
  Sender: FDA-Public Use
  Company Number: A03200603185

PATIENT
  Age: 52 Year
  Sex: Female

DRUGS (1)
  1. PLAVIX [Suspect]
     Indication: STENT PLACEMENT
     Dosage: 600 MG LOADING DOSE FOLLOWED BY 75 MG QD THEREAFTER - ORAL
     Route: 048
     Dates: start: 20050401

REACTIONS (4)
  - GASTROINTESTINAL ULCER HAEMORRHAGE [None]
  - PRESCRIBED OVERDOSE [None]
  - RECTAL HAEMORRHAGE [None]
  - WHITE BLOOD CELL COUNT INCREASED [None]
